FAERS Safety Report 6222878-1 (Version None)
Quarter: 2009Q2

REPORT INFORMATION
  Report Type: 
  Country: None (occurrence: None)
  Receive Date: 20090611
  Receipt Date: 20090603
  Transmission Date: 20091009
  Serious: Yes (Death)
  Sender: FDA-Public Use
  Company Number: JP-ROCHE-636872

PATIENT
  Age: 10 Month
  Sex: Male

DRUGS (5)
  1. ROCEPHIN [Suspect]
     Indication: MENINGITIS BACTERIAL
     Dosage: ROUTE: INTRAVENOUS (NOT OTHERWISE SPECIFIED)
     Route: 042
  2. MEROPENEM [Suspect]
     Indication: DRUG USE FOR UNKNOWN INDICATION
     Route: 041
  3. CLAFORAN [Suspect]
     Indication: DRUG USE FOR UNKNOWN INDICATION
     Dosage: ROUTE: INJECTABLE (NOT OTHERWISE SPECIFIED)
     Route: 050
  4. MIRACLID [Concomitant]
     Dosage: ROUTE; INTRAVENOUS (NOT OTHERWISE SPECIFIED)
     Route: 042
  5. FAMOTIDINE [Concomitant]

REACTIONS (3)
  - DRUG RASH WITH EOSINOPHILIA AND SYSTEMIC SYMPTOMS [None]
  - HEPATIC FAILURE [None]
  - SEPSIS [None]
